FAERS Safety Report 10167032 (Version 1)
Quarter: 2014Q2

REPORT INFORMATION
  Report Type: Spontaneous
  Country: US (occurrence: None)
  Receive Date: 20140508
  Receipt Date: 20140508
  Transmission Date: 20141212
  Serious: Yes (Other)
  Sender: FDA-Public Use
  Company Number: 2014AP002922

PATIENT
  Age: 73 Year
  Sex: Female

DRUGS (13)
  1. PAROXETINE HYDROCHLORIDE (PAROXETINE) UNKNOWN [Suspect]
     Indication: PRODUCT USED FOR UNKNOWN INDICATION
     Route: 048
     Dates: start: 20130416, end: 20140228
  2. FAMPRIDINE [Suspect]
     Indication: MULTIPLE SCLEROSIS
     Route: 048
     Dates: start: 20130412, end: 20140228
  3. MODAFINIL (MODAFINIL) [Suspect]
     Indication: FATIGUE
     Route: 048
     Dates: start: 20130828
  4. NABUMETONE (NABUMETONE) [Concomitant]
  5. SOLIFENACIN SUCCINATE (SOLIFENACIN SUCCINATE) [Concomitant]
  6. ESCITALOPRAM (ESCITALOPRAM) [Concomitant]
  7. CLONAZEPAM TABLETS USP (CLONAZEPAM) [Concomitant]
  8. CYCLOBENZAPRINE (CYCLOBENZAPRINE) [Concomitant]
  9. SINGULAIR (MONTELUKAST SODIUM) [Concomitant]
  10. CALCIUM CARBONATE W/VITAMIN D NOS (CALCIUM CARBONATE, VITAMIN D NOS) [Concomitant]
  11. CYANOCOBALAMIN (CYANOCOBALAMIN) [Concomitant]
  12. COLECALCIFEROL (COLECALCIFEROL) [Concomitant]
  13. INFLUENZA VACCINE (INFLUENZA VACCINE) [Concomitant]

REACTIONS (27)
  - Multiple sclerosis relapse [None]
  - Stress fracture [None]
  - Fall [None]
  - Vulvovaginal pruritus [None]
  - Micturition disorder [None]
  - Dysuria [None]
  - Muscle tightness [None]
  - Coordination abnormal [None]
  - Crying [None]
  - Emotional distress [None]
  - Therapeutic response changed [None]
  - Musculoskeletal pain [None]
  - Injury [None]
  - Drug ineffective [None]
  - Pain in extremity [None]
  - Headache [None]
  - Constipation [None]
  - Dizziness [None]
  - Memory impairment [None]
  - Gait disturbance [None]
  - Balance disorder [None]
  - Coordination abnormal [None]
  - Hemiparesis [None]
  - Stress [None]
  - Musculoskeletal pain [None]
  - Depressed mood [None]
  - Drug interaction [None]
